FAERS Safety Report 8265762-4 (Version None)
Quarter: 2012Q2

REPORT INFORMATION
  Report Type: 
  Country: None (occurrence: None)
  Receive Date: 20120406
  Receipt Date: 20120331
  Transmission Date: 20120825
  Serious: Yes (Hospitalization, Other)
  Sender: FDA-Public Use
  Company Number: DE-ROCHE-1018875

PATIENT
  Age: 86 Year
  Sex: Female
  Weight: 52 kg

DRUGS (1)
  1. BONIVA [Suspect]
     Indication: OSTEOPOROSIS POSTMENOPAUSAL
     Route: 042
     Dates: start: 20100809

REACTIONS (2)
  - FALL [None]
  - FEMORAL NECK FRACTURE [None]
